FAERS Safety Report 12900485 (Version 1)
Quarter: 2016Q4

REPORT INFORMATION
  Report Type: Report from Study
  Country: DE (occurrence: DE)
  Receive Date: 20161101
  Receipt Date: 20161101
  Transmission Date: 20170207
  Serious: Yes (Other)
  Sender: FDA-Public Use
  Company Number: DE-BAYER-2015-388280

PATIENT
  Age: 30 Year
  Sex: Female
  Weight: 62 kg

DRUGS (1)
  1. MIRENA [Suspect]
     Active Substance: LEVONORGESTREL
     Indication: CONTRACEPTION
     Dosage: 20 MCG/24HR, CONT
     Route: 015
     Dates: start: 20150126, end: 20150204

REACTIONS (7)
  - Abdominal pain [Recovered/Resolved]
  - Adnexal torsion [Recovered/Resolved]
  - Ovarian cyst [Recovered/Resolved]
  - Uterine perforation [Recovered/Resolved]
  - Abdominal adhesions [Recovered/Resolved]
  - Device use issue [None]
  - Haematosalpinx [Recovered/Resolved]

NARRATIVE: CASE EVENT DATE: 20150204
